FAERS Safety Report 7262358-8 (Version None)
Quarter: 2011Q1

REPORT INFORMATION
  Report Type: 
  Country: None (occurrence: None)
  Receive Date: 20110120
  Receipt Date: 20110113
  Transmission Date: 20110831
  Serious: Yes (Other)
  Sender: FDA-Public Use
  Company Number: ABTXA-11-0040

PATIENT
  Age: 45 Year
  Sex: Female

DRUGS (5)
  1. RADIATION [Concomitant]
  2. OMEGA-3 FATTY ACIDS [Concomitant]
  3. ZOFRAN [Concomitant]
  4. ABRAXANE [Suspect]
     Indication: BREAST CANCER METASTATIC
     Dosage: ONCE WEEKLY
     Dates: start: 20101201, end: 20110101
  5. WELLBUTRIN [Concomitant]

REACTIONS (1)
  - OPTIC NEUROPATHY [None]
